FAERS Safety Report 22304374 (Version 1)
Quarter: 2023Q2

REPORT INFORMATION
  Report Type: Spontaneous
  Country: US (occurrence: None)
  Receive Date: 20230509
  Receipt Date: 20230509
  Transmission Date: 20230722
  Serious: Yes (Hospitalization)
  Sender: FDA-Public Use
  Company Number: None

PATIENT
  Age: 53 Year
  Sex: Male
  Weight: 78.75 kg

DRUGS (1)
  1. SEROQUEL [Suspect]
     Active Substance: QUETIAPINE FUMARATE
     Indication: Depression
     Dosage: OTHER QUANTITY : 1 TABLET(S);?FREQUENCY : TWICE A DAY;?
     Route: 048

REACTIONS (8)
  - Heart rate irregular [None]
  - Hyperhidrosis [None]
  - Confusional state [None]
  - Disorientation [None]
  - Lethargy [None]
  - Loss of consciousness [None]
  - Dyspnoea [None]
  - Urinary incontinence [None]

NARRATIVE: CASE EVENT DATE: 20230509
